APPROVED DRUG PRODUCT: DULOXETINE HYDROCHLORIDE
Active Ingredient: DULOXETINE HYDROCHLORIDE
Strength: EQ 60MG BASE
Dosage Form/Route: CAPSULE, DELAYED REL PELLETS;ORAL
Application: A208706 | Product #003 | TE Code: AB
Applicant: AJANTA PHARMA LTD
Approved: Jan 6, 2017 | RLD: No | RS: Yes | Type: RX